FAERS Safety Report 4841490-X (Version None)
Quarter: 2005Q4

REPORT INFORMATION
  Report Type: 
  Country: None (occurrence: None)
  Receive Date: 20051130
  Receipt Date: 20050808
  Transmission Date: 20060501
  Serious: No
  Sender: FDA-Public Use
  Company Number: US-GLAXOSMITHKLINE-A0569222A

PATIENT
  Age: 39 Year
  Sex: Female

DRUGS (6)
  1. WELLBUTRIN XL [Suspect]
     Indication: DEPRESSION
     Dosage: 150MG PER DAY
     Route: 048
     Dates: start: 20041001
  2. PROPRANOLOL [Concomitant]
  3. DEPO-PROVERA [Concomitant]
  4. TRAZODONE [Concomitant]
  5. CENTRUM [Concomitant]
  6. CLARITIN-D [Concomitant]

REACTIONS (1)
  - AMNESIA [None]
